FAERS Safety Report 10633484 (Version 1)
Quarter: 2014Q4

REPORT INFORMATION
  Report Type: Spontaneous
  Country: US (occurrence: None)
  Receive Date: 20141203
  Receipt Date: 20141203
  Transmission Date: 20150529
  Serious: Yes (Other)
  Sender: FDA-Public Use
  Company Number: COR_00165_2014

PATIENT
  Age: 14 Month
  Sex: Male

DRUGS (3)
  1. MELPHALAN [Suspect]
     Active Substance: MELPHALAN
     Indication: RETINOBLASTOMA
     Dosage: (5 MG 3X, [DILUTED IN 30 ML OF SALINE, PULSATILE, NON-LAMINATED, MANUAL TECHNIQUE OVER 30 MIN] INTRA-ARTERIAL)
     Route: 013
  2. CARBOPLATIN. [Suspect]
     Active Substance: CARBOPLATIN
     Indication: RETINOBLASTOMA
     Dosage: (30 MG 3X, [DILUTED IN 30 ML OF SALINE, PULSATILE, MANUAL, NON-LAMINATED TECHNIQUE OVER 30 MIN] INTRA-ARTERIAL)
     Route: 013
  3. HEPARIN [Concomitant]
     Active Substance: HEPARIN SODIUM

REACTIONS (4)
  - Eyelid oedema [None]
  - Retinal detachment [None]
  - Eyelid ptosis [None]
  - Extraocular muscle disorder [None]
